FAERS Safety Report 9270965 (Version 1)
Quarter: 2013Q2

REPORT INFORMATION
  Report Type: Spontaneous
  Country: US (occurrence: US)
  Receive Date: 20130506
  Receipt Date: 20130506
  Transmission Date: 20140414
  Serious: No
  Sender: FDA-Public Use
  Company Number: US-009507513-1304USA015777

PATIENT
  Age: 19 Year
  Sex: Female
  Weight: 73.16 kg

DRUGS (1)
  1. NEXPLANON [Suspect]
     Indication: CONTRACEPTION
     Dosage: UNK
     Route: 059
     Dates: start: 20130422

REACTIONS (3)
  - Injection site reaction [Unknown]
  - Dysmenorrhoea [Unknown]
  - Menstrual disorder [Unknown]
